FAERS Safety Report 16827358 (Version 1)
Quarter: 2019Q3

REPORT INFORMATION
  Report Type: Spontaneous
  Country: NL (occurrence: NL)
  Receive Date: 20190919
  Receipt Date: 20190919
  Transmission Date: 20191005
  Serious: Yes (Other)
  Sender: FDA-Public Use
  Company Number: NL-ASTRAZENECA-2019SF29991

PATIENT
  Sex: Female

DRUGS (9)
  1. PANTOPRAZOL [Concomitant]
     Active Substance: PANTOPRAZOLE SODIUM
     Dosage: 1 TIME DAILY, 1 TABLET
  2. QUETIAPINE. [Suspect]
     Active Substance: QUETIAPINE
     Route: 048
  3. ALPRAZOLAM. [Concomitant]
     Active Substance: ALPRAZOLAM
     Dosage: AS REQUIRED
  4. DESOGESTREL [Concomitant]
     Active Substance: DESOGESTREL
     Dosage: 1 TIME DAILY, 2 TABLETS
  5. ZOPICLON [Concomitant]
     Active Substance: ZOPICLONE
     Dosage: 1 TIME DAILY, 1 TABLET
  6. THYRAX DUOTAB [Concomitant]
     Active Substance: LEVOTHYROXINE
     Dosage: 1 TIME DAILY, 3.5 TABLETS
  7. COLECALCIFEROL [Concomitant]
     Active Substance: CHOLECALCIFEROL
     Dosage: 1 TABLET WEEKLY
  8. FENPROCOUMON [Concomitant]
     Active Substance: PHENPROCOUMON
     Dosage: ACCORDING TO SCHEME THROMBOSIS SERVICE
  9. HALOPERIDOL. [Concomitant]
     Active Substance: HALOPERIDOL
     Dosage: 1 TIME DAILY 1 TABLET, 1 TIME DAILY 2 TABLETS

REACTIONS (3)
  - Hypertensive crisis [Recovering/Resolving]
  - Hypertension [Recovered/Resolved]
  - Contraindicated product administered [Not Recovered/Not Resolved]

NARRATIVE: CASE EVENT DATE: 2018
